FAERS Safety Report 12934641 (Version 2)
Quarter: 2017Q3

REPORT INFORMATION
  Report Type: Report from Study
  Country: None (occurrence: BR)
  Receive Date: 20161111
  Receipt Date: 20170814
  Transmission Date: 20171127
  Serious: Yes (Hospitalization, Other)
  Sender: FDA-Public Use
  Company Number: BR-ABBVIE-16P-020-1779070-00

PATIENT
  Age: 45 Year
  Sex: Female
  Weight: 49 kg

DRUGS (3)
  1. DEPAKOTE ER [Suspect]
     Active Substance: DIVALPROEX SODIUM
     Indication: SEIZURE
     Dosage: DAILY DOSE: 2000 MG (2 TABLETS IN THE MORNING/2 TABLETS AT NIGHT)
     Route: 048
     Dates: start: 20160618, end: 201610
  2. MAREVAN [Concomitant]
     Active Substance: WARFARIN SODIUM
     Indication: ANTICOAGULANT THERAPY
     Route: 048
     Dates: start: 20160618
  3. LAMITOR [Concomitant]
     Active Substance: LAMOTRIGINE
     Indication: CONVULSION PROPHYLAXIS
     Dosage: DAILY DOSE: 100 MG (2 TABLETS IN THE MORNING/2 TABLETS AT NIGHT)
     Route: 048
     Dates: end: 20161001

REACTIONS (8)
  - Pruritus [Not Recovered/Not Resolved]
  - Feeling hot [Unknown]
  - Drug reaction with eosinophilia and systemic symptoms [Not Recovered/Not Resolved]
  - Hepatitis [Recovering/Resolving]
  - Pain [Not Recovered/Not Resolved]
  - Middle insomnia [Unknown]
  - Pneumonitis [Recovering/Resolving]
  - Hypersensitivity [Not Recovered/Not Resolved]

NARRATIVE: CASE EVENT DATE: 2016
